FAERS Safety Report 9528131 (Version 1)
Quarter: 2013Q1

REPORT INFORMATION
  Report Type: Spontaneous
  Country: US (occurrence: None)
  Receive Date: 20130318
  Receipt Date: 20130318
  Transmission Date: 20140127
  Serious: Yes (Other)
  Sender: FDA-Public Use
  Company Number: 163-21660-12040837

PATIENT
  Sex: 0

DRUGS (4)
  1. ABRAXANE [Suspect]
     Indication: BLADDER CANCER
     Dosage: 260 MG/M2, IV
     Route: 042
  2. CARBOPLATIN [Suspect]
     Indication: BLADDER CANCER
     Dosage: ON DAY 1, UNK
  3. GEMCITABINE [Suspect]
     Indication: BLADDER CANCER
     Dosage: 800 MG/M2, ON DAYS 1 + 8, UNK
  4. FILGRASTIM (FILGRASTIM) (UNKNOWN) [Concomitant]

REACTIONS (2)
  - Febrile neutropenia [None]
  - Neutropenia [None]
